FAERS Safety Report 24004820 (Version 1)
Quarter: 2024Q2

REPORT INFORMATION
  Report Type: Spontaneous
  Country: DE (occurrence: DE)
  Receive Date: 20240624
  Receipt Date: 20240624
  Transmission Date: 20240716
  Serious: No
  Sender: FDA-Public Use
  Company Number: DE-PFIZER INC-202400179906

PATIENT
  Sex: Male

DRUGS (1)
  1. GENOTROPIN [Suspect]
     Active Substance: SOMATROPIN
     Dosage: UNK

REACTIONS (2)
  - Device issue [Unknown]
  - Device leakage [Unknown]
